FAERS Safety Report 6148769-2 (Version None)
Quarter: 2009Q2

REPORT INFORMATION
  Report Type: 
  Country: None (occurrence: None)
  Receive Date: 20090406
  Receipt Date: 20090324
  Transmission Date: 20091009
  Serious: Yes (Hospitalization, Other)
  Sender: FDA-Public Use
  Company Number: A-CH2009-24511

PATIENT
  Age: 66 Year
  Sex: Male
  Weight: 66.5 kg

DRUGS (9)
  1. TRACLEER [Suspect]
     Indication: PULMONARY ARTERIAL HYPERTENSION
     Dosage: 187.5 MG, BID, ORAL; 62.5 MG, BID,; 156.25 MG, BID, ORAL; 125 MG, BID, ORAL
     Route: 048
     Dates: start: 20060614, end: 20071211
  2. TRACLEER [Suspect]
     Indication: PULMONARY ARTERIAL HYPERTENSION
     Dosage: 187.5 MG, BID, ORAL; 62.5 MG, BID,; 156.25 MG, BID, ORAL; 125 MG, BID, ORAL
     Route: 048
     Dates: end: 20080623
  3. TRACLEER [Suspect]
     Indication: PULMONARY ARTERIAL HYPERTENSION
     Dosage: 187.5 MG, BID, ORAL; 62.5 MG, BID,; 156.25 MG, BID, ORAL; 125 MG, BID, ORAL
     Route: 048
     Dates: start: 20080624, end: 20080815
  4. TRACLEER [Suspect]
     Indication: PULMONARY ARTERIAL HYPERTENSION
     Dosage: 187.5 MG, BID, ORAL; 62.5 MG, BID,; 156.25 MG, BID, ORAL; 125 MG, BID, ORAL
     Route: 048
     Dates: start: 20071212
  5. FUROSEMIDE [Concomitant]
  6. SIMVASTATIN [Concomitant]
  7. DIGOXIN [Concomitant]
  8. ACENOCOUMAROL (ACENOCOUMAROL) [Concomitant]
  9. OXYGEN (OXYGEN) [Concomitant]

REACTIONS (2)
  - CHOLECYSTITIS [None]
  - GENERAL PHYSICAL HEALTH DETERIORATION [None]
